FAERS Safety Report 7126813 (Version 15)
Quarter: 2013Q3

REPORT INFORMATION
  Report Type: Spontaneous
  Country: CA (occurrence: CA)
  Receive Date: 20090923
  Receipt Date: 20130723
  Transmission Date: 20140515
  Serious: Yes (Other)
  Sender: FDA-Public Use
  Company Number: CA-ROCHE-GNE290645

PATIENT
  Age: 48 Year
  Sex: Male

DRUGS (17)
  1. XOLAIR [Suspect]
     Indication: ASTHMA
     Dosage: 375 MG, Q2W
     Route: 058
     Dates: start: 20090424
  2. XOLAIR [Suspect]
     Dosage: 375 MG, UNK
     Route: 058
     Dates: start: 20090911
  3. XOLAIR [Suspect]
     Dosage: 375 MG, Q2W
     Route: 058
     Dates: start: 20091106
  4. XOLAIR [Suspect]
     Dosage: 375 MG, Q2W
     Route: 058
     Dates: start: 20091120
  5. XOLAIR [Suspect]
     Dosage: UNK
     Route: 065
     Dates: start: 20100106
  6. XOLAIR [Suspect]
     Dosage: 375 MG, Q2W
     Route: 042
     Dates: start: 20100122
  7. XOLAIR [Suspect]
     Dosage: 375 MG, Q2W
     Route: 058
     Dates: start: 20100203
  8. XOLAIR [Suspect]
     Dosage: 375 MG, Q2W
     Route: 065
     Dates: start: 20100303
  9. XOLAIR [Suspect]
     Dosage: 375 MG, Q2W
     Route: 058
     Dates: start: 20100416
  10. OXEZE [Concomitant]
     Indication: PRODUCT USED FOR UNKNOWN INDICATION
  11. SYMBICORT [Concomitant]
     Indication: PRODUCT USED FOR UNKNOWN INDICATION
  12. SYMBICORT [Concomitant]
     Indication: PRODUCT USED FOR UNKNOWN INDICATION
  13. INFLUENZA VACCINE [Concomitant]
     Indication: PRODUCT USED FOR UNKNOWN INDICATION
  14. PARACETAMOL [Concomitant]
     Indication: PRODUCT USED FOR UNKNOWN INDICATION
  15. PSEUDOEPHEDRINE HYDROCHLORIDE [Concomitant]
     Indication: PRODUCT USED FOR UNKNOWN INDICATION
  16. NASONEX [Concomitant]
     Indication: PRODUCT USED FOR UNKNOWN INDICATION
     Dosage: UNK
     Route: 065
     Dates: start: 20090424
  17. NASONEX [Concomitant]
     Indication: PRODUCT USED FOR UNKNOWN INDICATION
     Dosage: UNK
     Route: 065
     Dates: start: 20090424

REACTIONS (23)
  - Respiratory failure [Unknown]
  - Asthma [Unknown]
  - Oropharyngeal pain [Unknown]
  - Dyspnoea [Unknown]
  - Nasopharyngitis [Unknown]
  - Secretion discharge [Unknown]
  - Body temperature decreased [Unknown]
  - Lacrimation increased [Unknown]
  - Drug withdrawal syndrome [Unknown]
  - Oropharyngeal pain [Unknown]
  - Cough [Unknown]
  - Nasal congestion [Unknown]
  - Rhinorrhoea [Unknown]
  - Sleep disorder [Unknown]
  - Heart rate increased [Unknown]
  - Treatment noncompliance [Unknown]
  - Productive cough [Unknown]
  - Blood pressure decreased [Unknown]
  - Pruritus [Unknown]
  - Rhinitis [Unknown]
  - Headache [Unknown]
  - Rhinitis allergic [Unknown]
  - Respiratory tract infection viral [Unknown]
